FAERS Safety Report 11345145 (Version 1)
Quarter: 2015Q3

REPORT INFORMATION
  Report Type: Spontaneous
  Country: FR (occurrence: FR)
  Receive Date: 20150806
  Receipt Date: 20150806
  Transmission Date: 20151125
  Serious: Yes (Hospitalization)
  Sender: FDA-Public Use
  Company Number: FR-009507513-1006FRA00093

PATIENT
  Age: 55 Year
  Sex: Male

DRUGS (5)
  1. PARKINANE RETARD [Concomitant]
     Active Substance: TRIHEXYPHENIDYL HYDROCHLORIDE
     Dosage: 2 UNK, QD
     Route: 048
  2. NEULEPTIL [Concomitant]
     Active Substance: PERICIAZINE
     Dosage: 10 UNK, TID
     Route: 048
  3. HYZAAR [Suspect]
     Active Substance: HYDROCHLOROTHIAZIDE\LOSARTAN POTASSIUM
     Indication: HYPERTENSION
     Dosage: 50 MG-12.5 QD
     Route: 048
     Dates: end: 20090731
  4. TEGRETOL [Interacting]
     Active Substance: CARBAMAZEPINE
     Dosage: 200 MG, TID
     Route: 048
     Dates: end: 20090731
  5. NOZINAN [Concomitant]
     Active Substance: LEVOMEPROMAZINE
     Dosage: 10 UNK, TID
     Route: 048

REACTIONS (4)
  - Hyponatraemia [Recovered/Resolved]
  - Balance disorder [Recovered/Resolved]
  - Drug interaction [Recovered/Resolved]
  - Nystagmus [Recovered/Resolved]

NARRATIVE: CASE EVENT DATE: 20090730
